FAERS Safety Report 4752148-X (Version None)
Quarter: 2005Q3

REPORT INFORMATION
  Report Type: 
  Country: None (occurrence: None)
  Receive Date: 20050825
  Receipt Date: 20050615
  Transmission Date: 20060218
  Serious: Yes (Hospitalization)
  Sender: FDA-Public Use
  Company Number: HQWYE515917JUN05

PATIENT
  Sex: Female
  Weight: 35 kg

DRUGS (6)
  1. ENBREL [Suspect]
     Indication: RHEUMATOID ARTHRITIS
     Route: 058
     Dates: start: 20050527
  2. PREDNISOLONE [Concomitant]
     Route: 048
     Dates: start: 20050408, end: 20050620
  3. PREDNISOLONE [Concomitant]
     Route: 048
     Dates: start: 20050621
  4. LANSOPRAZOLE [Concomitant]
     Route: 048
     Dates: start: 20050408
  5. VOLTAREN [Concomitant]
     Dates: start: 20050408, end: 20050613
  6. LORNOXICAM [Concomitant]
     Route: 048
     Dates: start: 20050524, end: 20050613

REACTIONS (3)
  - DIARRHOEA [None]
  - GASTROINTESTINAL AMYLOIDOSIS [None]
  - GASTROINTESTINAL ULCER [None]
